FAERS Safety Report 10293222 (Version 2)
Quarter: 2014Q3

REPORT INFORMATION
  Report Type: Spontaneous
  Country: US (occurrence: US)
  Receive Date: 20140710
  Receipt Date: 20140710
  Transmission Date: 20150326
  Serious: No
  Sender: FDA-Public Use
  Company Number: US-PURDUE-USA-2013-0108166

PATIENT
  Sex: Female
  Weight: 91.16 kg

DRUGS (1)
  1. BUTRANS [Suspect]
     Active Substance: BUPRENORPHINE
     Indication: MYALGIA
     Dosage: 20 MCG/HR, WEEKLY
     Route: 062
     Dates: start: 20130513, end: 20130830

REACTIONS (1)
  - Rash [Not Recovered/Not Resolved]
